FAERS Safety Report 9928100 (Version 1)
Quarter: 2014Q1

REPORT INFORMATION
  Report Type: Spontaneous
  Country: US (occurrence: None)
  Receive Date: 20140226
  Receipt Date: 20140226
  Transmission Date: 20141002
  Serious: Yes (Hospitalization)
  Sender: FDA-Public Use
  Company Number: None

PATIENT
  Age: 64 Year
  Sex: Male

DRUGS (1)
  1. ALBUTEROL/IPRATROPIUM [Suspect]
     Route: 055
     Dates: start: 20140219, end: 20140219

REACTIONS (3)
  - Dyspnoea [None]
  - Wheezing [None]
  - Hyperhidrosis [None]
